FAERS Safety Report 16733823 (Version 1)
Quarter: 2019Q3

REPORT INFORMATION
  Report Type: Spontaneous
  Country: AU (occurrence: AU)
  Receive Date: 20190823
  Receipt Date: 20190823
  Transmission Date: 20191005
  Serious: Yes (Life-Threatening, Hospitalization, Other)
  Sender: FDA-Public Use
  Company Number: AU-BAYER-2018-064364

PATIENT
  Age: 25 Year
  Sex: Female

DRUGS (2)
  1. MIRENA [Suspect]
     Active Substance: LEVONORGESTREL
     Dosage: 20 MCG/24HR, CONT
     Route: 015
  2. MIRENA [Suspect]
     Active Substance: LEVONORGESTREL

REACTIONS (13)
  - Lactation disorder [None]
  - Device deployment issue [None]
  - Post-traumatic stress disorder [None]
  - Procedural pain [None]
  - Dizziness [None]
  - Loss of consciousness [None]
  - Procedural dizziness [None]
  - Uterine perforation [None]
  - Post procedural haemorrhage [None]
  - Tremor [None]
  - Speech disorder [None]
  - Procedural haemorrhage [None]
  - Feeling cold [None]
